FAERS Safety Report 20213253 (Version 1)
Quarter: 2021Q4

REPORT INFORMATION
  Report Type: Spontaneous
  Country: US (occurrence: US)
  Receive Date: 20211221
  Receipt Date: 20211221
  Transmission Date: 20220303
  Serious: No
  Sender: FDA-Public Use
  Company Number: US-PFIZER INC-202101211832

PATIENT
  Sex: Female

DRUGS (6)
  1. ESTRING [Suspect]
     Active Substance: ESTRADIOL
     Indication: Menopausal symptoms
     Dosage: UNK
  2. ESTRING [Suspect]
     Active Substance: ESTRADIOL
     Indication: Vulvovaginal dryness
  3. ESTRING [Suspect]
     Active Substance: ESTRADIOL
     Indication: Vaginal infection
  4. ESTRING [Suspect]
     Active Substance: ESTRADIOL
     Indication: Cystitis interstitial
  5. ESTRING [Suspect]
     Active Substance: ESTRADIOL
     Indication: Cystitis
  6. ESTRADIOL TRANSDERMAL SYSTEM [Concomitant]
     Active Substance: ESTRADIOL
     Dosage: 0.075 MG, 2X/WEEK

REACTIONS (3)
  - Off label use [Unknown]
  - Drug ineffective for unapproved indication [Unknown]
  - Wrong technique in product usage process [Unknown]
